FAERS Safety Report 18046900 (Version 1)
Quarter: 2020Q3

REPORT INFORMATION
  Report Type: Other
  Country: US (occurrence: US)
  Receive Date: 20200721
  Receipt Date: 20200721
  Transmission Date: 20201103
  Serious: Yes (Hospitalization, Other)
  Sender: FDA-Public Use
  Company Number: US-BIOCON-BCN-2020-000949

PATIENT
  Age: 58 Year
  Sex: Female

DRUGS (2)
  1. FINGOLIMOD HYDROCHLORIDE [Suspect]
     Active Substance: FINGOLIMOD HYDROCHLORIDE
     Indication: RELAPSING MULTIPLE SCLEROSIS
     Dosage: UNKNOWN DOSE
     Route: 065
     Dates: start: 2011
  2. FINGOLIMOD HYDROCHLORIDE [Suspect]
     Active Substance: FINGOLIMOD HYDROCHLORIDE
     Dosage: UNKNOWN DOSE
     Route: 065

REACTIONS (1)
  - COVID-19 [Recovered/Resolved]
